FAERS Safety Report 15531590 (Version 1)
Quarter: 2018Q4

REPORT INFORMATION
  Report Type: Spontaneous
  Country: CA (occurrence: CA)
  Receive Date: 20181019
  Receipt Date: 20181019
  Transmission Date: 20190205
  Serious: Yes (Other)
  Sender: FDA-Public Use
  Company Number: CA-INCYTE CORPORATION-2018IN010599

PATIENT

DRUGS (2)
  1. VISMODEGIB. [Suspect]
     Active Substance: VISMODEGIB
     Indication: MYELOFIBROSIS
     Dosage: 150 MG, QD
     Route: 048
  2. JAKAVI [Suspect]
     Active Substance: RUXOLITINIB
     Indication: MYELOFIBROSIS
     Dosage: UNK UNK, BID
     Route: 048

REACTIONS (2)
  - Enterocolitis infectious [Unknown]
  - Muscle spasms [Unknown]
